FAERS Safety Report 10031679 (Version 1)
Quarter: 2014Q1

REPORT INFORMATION
  Report Type: Spontaneous
  Country: US (occurrence: US)
  Receive Date: 20140324
  Receipt Date: 20140324
  Transmission Date: 20141002
  Serious: No
  Sender: FDA-Public Use
  Company Number: US-PFIZER INC-2014082388

PATIENT
  Age: 58 Year
  Sex: Female

DRUGS (37)
  1. EFFEXOR XR [Suspect]
     Dosage: UNK
  2. EFFEXOR [Suspect]
     Dosage: UNK
  3. TRAMADOL HCL [Suspect]
     Dosage: UNK
  4. TETRACYCLINE HCL [Suspect]
     Dosage: UNK
  5. LEVOFLOXACIN [Suspect]
     Dosage: UNK
  6. MORPHINE SULFATE [Suspect]
     Dosage: UNK
  7. DILTIAZEM HCL [Suspect]
     Dosage: UNK
  8. NITROSTAT [Suspect]
     Dosage: UNK
  9. LOSARTAN POTASSIUM [Suspect]
     Dosage: UNK
  10. SIMVASTATIN [Suspect]
     Dosage: UNK
  11. MONTELUKAST [Suspect]
     Dosage: UNK
  12. ZOLPIDEM TARTRATE [Suspect]
     Dosage: UNK
  13. MACRODANTIN [Suspect]
     Dosage: UNK
  14. PROPOFOL [Suspect]
     Dosage: UNK
  15. PILOCARPINE HYDROCHLORIDE [Suspect]
     Dosage: UNK
  16. STADOL [Suspect]
     Dosage: UNK
  17. DEMEROL [Suspect]
     Dosage: UNK
  18. ROCEPHIN [Suspect]
     Dosage: UNK
  19. NUBAIN [Suspect]
     Dosage: UNK
  20. OXYBUTIN [Suspect]
     Dosage: UNK
  21. THEOPHYLLINE [Suspect]
     Dosage: UNK
  22. ASPIRIN [Suspect]
     Dosage: UNK
  23. ALOMIDE [Suspect]
     Dosage: UNK
  24. PERCODAN [Suspect]
     Dosage: UNK
  25. CEFZIL [Suspect]
     Dosage: UNK
  26. NITROFURAN [Suspect]
     Dosage: UNK
  27. CYCLOBENZAPRINE [Suspect]
     Dosage: UNK
  28. ISOSORBIDE MONONITRATE ER [Suspect]
     Dosage: UNK
  29. FLUTICASONE [Suspect]
     Dosage: UNK
  30. EPI [Suspect]
     Dosage: UNK
  31. VITAMIN D [Suspect]
     Dosage: UNK
  32. FERROUS SULPHATE [Suspect]
     Dosage: UNK
  33. ACIDOPHILUS [Suspect]
     Dosage: UNK
  34. SYSTANE [Suspect]
     Dosage: UNK
  35. REFRESH [Suspect]
     Dosage: UNK, AS NEEDED
  36. OMEGA-3 FATTY ACIDS [Suspect]
     Dosage: UNK
  37. MUCINEX [Suspect]
     Dosage: UNK

REACTIONS (1)
  - Drug hypersensitivity [Unknown]
